FAERS Safety Report 6176206-0 (Version None)
Quarter: 2009Q2

REPORT INFORMATION
  Report Type: 
  Country: None (occurrence: None)
  Receive Date: 20090501
  Receipt Date: 20090424
  Transmission Date: 20091009
  Serious: Yes (Death, Hospitalization)
  Sender: FDA-Public Use
  Company Number: A0765770A

PATIENT
  Age: 71 Year
  Sex: Male
  Weight: 93.2 kg

DRUGS (5)
  1. AVANDIA [Suspect]
     Indication: DIABETES MELLITUS
     Dosage: 8MG PER DAY
     Route: 048
     Dates: start: 20060416, end: 20070520
  2. METFORMIN HCL [Concomitant]
  3. NORVASC [Concomitant]
  4. FLOMAX [Concomitant]
  5. LIPITOR [Concomitant]

REACTIONS (2)
  - CARDIAC ARREST [None]
  - MYOCARDIAL INFARCTION [None]
